FAERS Safety Report 10523044 (Version 1)
Quarter: 2014Q4

REPORT INFORMATION
  Report Type: Report from Study
  Country: CA (occurrence: CA)
  Receive Date: 20141016
  Receipt Date: 20141016
  Transmission Date: 20150528
  Serious: Yes (Death)
  Sender: FDA-Public Use
  Company Number: CA-B.I. PHARMACEUTICALS,INC./RIDGEFIELD-2014-BI-49372BI

PATIENT
  Sex: Male
  Weight: 76.2 kg

DRUGS (19)
  1. PRADAXA [Suspect]
     Active Substance: DABIGATRAN ETEXILATE MESYLATE
     Dosage: 220 MG
     Route: 048
     Dates: start: 20110421, end: 20110921
  2. TIAZAC XC [Concomitant]
     Indication: HYPERTENSION
     Dosage: 240 MG
     Route: 048
     Dates: start: 20030624, end: 20110921
  3. AMOXICILLIN + CLAVULANIC ACID [Concomitant]
     Active Substance: AMOXICILLIN\CLAVULANIC ACID
     Indication: PRODUCT USED FOR UNKNOWN INDICATION
     Dosage: DOSE PER APPLICATION AND DAILY DOSE: 500 MG, 125 MG
     Route: 048
     Dates: end: 20110921
  4. SLOW-K [Concomitant]
     Active Substance: POTASSIUM CHLORIDE
     Indication: HYPERTENSION
     Dosage: 24 MEQ
     Route: 048
     Dates: start: 20070131, end: 20110921
  5. SPIRIVA [Concomitant]
     Active Substance: TIOTROPIUM BROMIDE MONOHYDRATE
     Indication: CARDIAC FAILURE CONGESTIVE
     Dosage: 18 MCG
     Route: 055
     Dates: end: 20110921
  6. DULCOLAX [Concomitant]
     Active Substance: BISACODYL OR DOCUSATE SODIUM
     Indication: HYPERTENSION
     Dosage: DAILY DOSE:UP TO 20 MG PRN
     Route: 048
     Dates: start: 20110418, end: 20110921
  7. PRADAXA [Suspect]
     Active Substance: DABIGATRAN ETEXILATE MESYLATE
     Indication: ATRIAL FIBRILLATION
     Dosage: 220 MG
     Route: 048
     Dates: start: 201103
  8. COLACE [Concomitant]
     Active Substance: DOCUSATE SODIUM
     Indication: CONSTIPATION
     Dosage: 200 MG
     Route: 048
     Dates: start: 20080824, end: 20110921
  9. EPREX [Concomitant]
     Active Substance: ERYTHROPOIETIN
     Indication: ANAEMIA
     Dosage: ROUTE: INJECTION; DOSE PER APPLICATION AND DAILY DOSE: 40,000 IU/ML
     Route: 050
     Dates: end: 20110921
  10. LASIX [Concomitant]
     Active Substance: FUROSEMIDE
     Indication: CARDIAC FAILURE CONGESTIVE
     Dosage: 200 MG
     Route: 048
     Dates: start: 20030624, end: 20110921
  11. PREVACID [Concomitant]
     Active Substance: LANSOPRAZOLE
     Indication: GASTROOESOPHAGEAL REFLUX DISEASE
     Dosage: 60 MG
     Route: 048
     Dates: start: 20070329, end: 20110921
  12. LANOXIN [Concomitant]
     Active Substance: DIGOXIN
     Indication: CARDIAC FAILURE CONGESTIVE
     Dosage: 0.0625 MG
     Route: 048
     Dates: start: 20030624, end: 20110921
  13. FERROUS FUMARATE [Concomitant]
     Active Substance: FERROUS FUMARATE
     Indication: ANAEMIA
     Dosage: 300 MG
     Route: 048
     Dates: start: 20110421, end: 20110921
  14. COVERSYL [Concomitant]
     Active Substance: PERINDOPRIL
     Indication: CARDIAC FAILURE CONGESTIVE
     Dosage: 2 MG
     Route: 048
     Dates: start: 20080824, end: 20110921
  15. PENNSAID [Concomitant]
     Active Substance: DICLOFENAC SODIUM
     Indication: OSTEOARTHRITIS
     Dosage: STRENGTH AND DAILY DOSE: 1.5% ML (40 DROPS X3 DAILY)
     Route: 061
     Dates: start: 20091206, end: 20110921
  16. LACTULOSE. [Concomitant]
     Active Substance: LACTULOSE
     Indication: CONSTIPATION
     Dosage: FORMULATION: LIQUID; DAILY DOSE: 666.7 PRN
     Route: 048
     Dates: start: 20100302, end: 20110921
  17. ALENDRONATE + CHOLECALCIFEROL [Concomitant]
     Indication: OSTEOPOROSIS
     Route: 048
     Dates: end: 20110921
  18. LANOXIN [Concomitant]
     Active Substance: DIGOXIN
     Indication: ATRIAL FIBRILLATION
  19. PERCODET [Concomitant]
     Indication: OSTEOARTHRITIS
     Dosage: 650 MG
     Route: 048
     Dates: start: 20091106, end: 20110921

REACTIONS (1)
  - Gastrointestinal haemorrhage [Fatal]
